FAERS Safety Report 8310694-6 (Version None)
Quarter: 2012Q2

REPORT INFORMATION
  Report Type: 
  Country: None (occurrence: None)
  Receive Date: 20120425
  Receipt Date: 20120418
  Transmission Date: 20120825
  Serious: Yes (Other)
  Sender: FDA-Public Use
  Company Number: JP-PFIZER INC-2012096597

PATIENT
  Age: 49 Year
  Sex: Female

DRUGS (3)
  1. METHYLPREDNISOLONE [Suspect]
     Indication: MIXED CONNECTIVE TISSUE DISEASE
     Dosage: 4 MG, 1X/DAY
     Dates: start: 19860101
  2. INFLIXIMAB [Concomitant]
     Indication: RHEUMATOID ARTHRITIS
     Dosage: UNK
     Dates: start: 20110401
  3. METHOTREXATE SODIUM [Suspect]
     Indication: RHEUMATOID ARTHRITIS
     Dosage: 8 MG, WEEKLY
     Dates: start: 20100301

REACTIONS (1)
  - ATYPICAL MYCOBACTERIAL INFECTION [None]
